FAERS Safety Report 20015428 (Version 1)
Quarter: 2021Q4

REPORT INFORMATION
  Report Type: Spontaneous
  Country: US (occurrence: None)
  Receive Date: 20211030
  Receipt Date: 20211030
  Transmission Date: 20220303
  Serious: No
  Sender: FDA-Public Use
  Company Number: None

PATIENT
  Age: 31 Year
  Sex: Male
  Weight: 72 kg

DRUGS (1)
  1. SOTROVIMAB [Suspect]
     Active Substance: SOTROVIMAB
     Indication: COVID-19
     Dosage: OTHER QUANTITY : 1 BAG;?
     Route: 042
     Dates: start: 20211029, end: 20211029

REACTIONS (6)
  - Intra-abdominal pressure increased [None]
  - Flatulence [None]
  - Diarrhoea [None]
  - Insomnia [None]
  - Pain [None]
  - Defaecation urgency [None]

NARRATIVE: CASE EVENT DATE: 20211030
